FAERS Safety Report 4609343-X (Version None)
Quarter: 2005Q1

REPORT INFORMATION
  Report Type: 
  Country: None (occurrence: None)
  Receive Date: 20050314
  Receipt Date: 20050301
  Transmission Date: 20050727
  Serious: Yes (Death, Hospitalization)
  Sender: FDA-Public Use
  Company Number: 2005040175

PATIENT
  Age: 84 Year
  Sex: Female

DRUGS (5)
  1. FRAGMIN [Suspect]
     Indication: THROMBOSIS
     Dosage: SUBCUTANEOUS
     Route: 058
  2. ASPIRIN [Concomitant]
     Indication: THROMBOSIS
     Dosage: ORAL
     Route: 048
  3. ALTEPLASE (ALTEPLASE) [Suspect]
     Indication: THROMBOSIS
     Dosage: INTRAVENOUS
     Route: 042
     Dates: start: 20041101, end: 20041102
  4. METOPROLOL SUCCINATE [Concomitant]
  5. SIMVASTATIN [Concomitant]

REACTIONS (5)
  - CEREBRAL HAEMORRHAGE [None]
  - GENERAL PHYSICAL HEALTH DETERIORATION [None]
  - LOSS OF CONSCIOUSNESS [None]
  - RESPIRATION ABNORMAL [None]
  - SNORING [None]
